FAERS Safety Report 6726432-4 (Version None)
Quarter: 2010Q2

REPORT INFORMATION
  Report Type: 
  Country: None (occurrence: None)
  Receive Date: 20100514
  Receipt Date: 20100504
  Transmission Date: 20101027
  Serious: Yes (Hospitalization)
  Sender: FDA-Public Use
  Company Number: SE-JNJFOC-20100505249

PATIENT
  Age: 53 Year
  Sex: Female

DRUGS (8)
  1. REMICADE [Suspect]
     Indication: MULTIPLE SCLEROSIS
     Dosage: 13 MONTHS
     Route: 042
  2. REMICADE [Suspect]
     Indication: CROHN'S DISEASE
     Dosage: 13 MONTHS
     Route: 042
  3. IMUREL [Suspect]
     Indication: DRUG USE FOR UNKNOWN INDICATION
  4. METHOTREXATE [Concomitant]
  5. SIFROL [Concomitant]
  6. FOLACIN [Concomitant]
  7. BEHEPAN [Concomitant]
  8. CALCIUM WITH VITAMIN D [Concomitant]

REACTIONS (1)
  - BREAST CANCER FEMALE [None]
